FAERS Safety Report 8208426-5 (Version None)
Quarter: 2012Q1

REPORT INFORMATION
  Report Type: 
  Country: None (occurrence: None)
  Receive Date: 20120314
  Receipt Date: 20120309
  Transmission Date: 20120608
  Serious: Yes (Other)
  Sender: FDA-Public Use
  Company Number: US-BAYER-200928630NA

PATIENT
  Age: 49 Year
  Sex: Female
  Weight: 105 kg

DRUGS (16)
  1. ASPIRIN [Concomitant]
  2. ALBUTEROL [Concomitant]
  3. SEPTRA [Concomitant]
     Indication: CELLULITIS
  4. SULFAMETHOXAZOLE AND TRIMETHOPRIM [Concomitant]
     Dosage: UNK
     Route: 048
     Dates: start: 20090602
  5. ADVAIR DISKUS 100/50 [Concomitant]
     Indication: ASTHMA
     Route: 055
     Dates: start: 20070101
  6. YAZ [Suspect]
     Indication: PREMENSTRUAL SYNDROME
     Dosage: 1 DF
     Route: 048
     Dates: start: 20090501, end: 20090623
  7. AUGMENTIN '125' [Concomitant]
     Indication: CELLULITIS
     Dosage: UNK
     Dates: start: 20090602
  8. YAZ [Suspect]
     Indication: GENITAL HAEMORRHAGE
  9. ANTIBIOTICS [Concomitant]
  10. MEGACE [Concomitant]
     Indication: MENSTRUAL DISORDER
     Dosage: INTERMITTENT
     Dates: start: 20081201, end: 20090401
  11. PHENTERMINE [Concomitant]
     Dates: start: 20090401
  12. PHENTERMINE [Concomitant]
     Dosage: 37.5 MG, UNK
     Dates: start: 20090602
  13. PROMETRIUM [Concomitant]
     Indication: MENSTRUAL DISORDER
     Dates: start: 20090424
  14. SINGULAIR [Concomitant]
     Indication: MULTIPLE ALLERGIES
     Dates: start: 20070101
  15. BENADRYL [Concomitant]
  16. PROAIR HFA [Concomitant]
     Indication: ASTHMA
     Dosage: UNK
     Route: 055
     Dates: start: 20090309

REACTIONS (4)
  - DEEP VEIN THROMBOSIS [None]
  - LIMB DISCOMFORT [None]
  - OEDEMA PERIPHERAL [None]
  - PAIN IN EXTREMITY [None]
